FAERS Safety Report 19316155 (Version 1)
Quarter: 2021Q2

REPORT INFORMATION
  Report Type: Spontaneous
  Country: US (occurrence: US)
  Receive Date: 20210527
  Receipt Date: 20210527
  Transmission Date: 20210717
  Serious: Yes (Hospitalization)
  Sender: FDA-Public Use
  Company Number: US-ASTRAZENECA-2021A451621

PATIENT
  Sex: Female

DRUGS (7)
  1. ACID CONTROLLER [Concomitant]
     Active Substance: FAMOTIDINE
  2. FIBERCON [Concomitant]
     Active Substance: CALCIUM POLYCARBOPHIL
  3. IRON [Concomitant]
     Active Substance: IRON
  4. TAGRISSO [Suspect]
     Active Substance: OSIMERTINIB
     Route: 048
  5. POTASSIUM [Concomitant]
     Active Substance: POTASSIUM
  6. VERAPAMIL [Concomitant]
     Active Substance: VERAPAMIL HYDROCHLORIDE
  7. LASIX [Concomitant]
     Active Substance: FUROSEMIDE

REACTIONS (2)
  - Blood potassium decreased [Not Recovered/Not Resolved]
  - Illness [Not Recovered/Not Resolved]
